FAERS Safety Report 19083898 (Version 1)
Quarter: 2021Q2

REPORT INFORMATION
  Report Type: Report from Study
  Country: None (occurrence: CA)
  Receive Date: 20210401
  Receipt Date: 20210401
  Transmission Date: 20210717
  Serious: Yes (Hospitalization)
  Sender: FDA-Public Use
  Company Number: CA-ABBVIE-21K-028-3732909-00

PATIENT
  Age: 63 Year
  Sex: Male

DRUGS (2)
  1. HUMIRA [Suspect]
     Active Substance: ADALIMUMAB
     Route: 058
     Dates: start: 202012
  2. HUMIRA [Suspect]
     Active Substance: ADALIMUMAB
     Indication: COLITIS ULCERATIVE
     Route: 058
     Dates: start: 20160610, end: 2020

REACTIONS (11)
  - Pneumonia viral [Recovered/Resolved]
  - Muscle spasms [Recovered/Resolved]
  - Abdominal pain [Unknown]
  - Drug ineffective [Not Recovered/Not Resolved]
  - Faeces soft [Recovered/Resolved]
  - Pleurisy [Recovered/Resolved]
  - Frequent bowel movements [Recovered/Resolved]
  - Osteoarthritis [Not Recovered/Not Resolved]
  - Haemorrhage [Recovered/Resolved]
  - Abdominal pain [Recovered/Resolved]
  - Colitis ulcerative [Unknown]

NARRATIVE: CASE EVENT DATE: 202012
